FAERS Safety Report 18812695 (Version 5)
Quarter: 2022Q3

REPORT INFORMATION
  Report Type: Spontaneous
  Country: SI (occurrence: None)
  Receive Date: 20210131
  Receipt Date: 20220906
  Transmission Date: 20221027
  Serious: Yes (Other)
  Sender: FDA-Public Use
  Company Number: SI-ROCHE-2759373

PATIENT
  Age: 32 Year
  Sex: Male

DRUGS (1)
  1. HEMLIBRA [Suspect]
     Active Substance: EMICIZUMAB-KXWH
     Indication: Factor VIII deficiency
     Dosage: DATE OF LAST DOSE: 15/JAN/2021
     Route: 058
     Dates: start: 202002

REACTIONS (2)
  - Acute myocardial infarction [Recovered/Resolved]
  - Haemorrhage [Unknown]

NARRATIVE: CASE EVENT DATE: 20210127
